FAERS Safety Report 7817406-0 (Version None)
Quarter: 2011Q4

REPORT INFORMATION
  Report Type: 
  Country: None (occurrence: None)
  Receive Date: 20111017
  Receipt Date: 20111006
  Transmission Date: 20120403
  Serious: Yes (Hospitalization)
  Sender: FDA-Public Use
  Company Number: FR-ROCHE-1002888

PATIENT
  Sex: Male

DRUGS (5)
  1. METHOTREXATE [Concomitant]
     Route: 042
     Dates: start: 20110615, end: 20110615
  2. CYCLOPHOSPHAMIDE [Suspect]
     Indication: ACUTE LYMPHOCYTIC LEUKAEMIA
     Route: 042
     Dates: start: 20110615, end: 20110616
  3. VP16/ARA-C/CISPLATIN/DECADRON [Concomitant]
     Route: 042
     Dates: start: 20110615, end: 20110615
  4. MABTHERA [Suspect]
     Indication: ACUTE LYMPHOCYTIC LEUKAEMIA
     Route: 042
     Dates: start: 20110615
  5. PURINETHOL [Concomitant]
     Route: 048

REACTIONS (1)
  - RENAL FAILURE [None]
